FAERS Safety Report 12857666 (Version 1)
Quarter: 2016Q4

REPORT INFORMATION
  Report Type: Spontaneous
  Country: IL (occurrence: IL)
  Receive Date: 20161018
  Receipt Date: 20161018
  Transmission Date: 20170207
  Serious: Yes (Other)
  Sender: FDA-Public Use
  Company Number: IL-ASTRAZENECA-2016SE79493

PATIENT
  Sex: Male

DRUGS (18)
  1. TAGRISSO [Suspect]
     Active Substance: OSIMERTINIB
     Indication: NON-SMALL CELL LUNG CANCER
     Route: 048
  2. NEUROGARD [Concomitant]
  3. VITAMIN B COMPLEX [Concomitant]
     Active Substance: CYANOCOBALAMIN\DEXPANTHENOL\NIACINAMIDE\PYRIDOXINE HYDROCHLORIDE\RIBOFLAVIN 5^-PHOSPHATE SODIUM\THIAMINE HYDROCHLORIDE\VITAMIN B COMPLEX
  4. CARDILOC [Concomitant]
     Active Substance: BISOPROLOL FUMARATE
  5. TAGRISSO [Suspect]
     Active Substance: OSIMERTINIB
     Indication: METASTASES TO CENTRAL NERVOUS SYSTEM
     Route: 048
  6. LIPITOR [Concomitant]
     Active Substance: ATORVASTATIN CALCIUM
     Dosage: TWO TIMES A DAY
  7. VITAMIN B12 [Concomitant]
     Active Substance: CYANOCOBALAMIN
  8. CLEXANE [Concomitant]
     Active Substance: ENOXAPARIN SODIUM
  9. FOLIC ACID. [Concomitant]
     Active Substance: FOLIC ACID
  10. MAGNESIUM [Concomitant]
     Active Substance: MAGNESIUM
  11. COENZYME Q10 [Concomitant]
     Active Substance: UBIDECARENONE
  12. NORVASC [Concomitant]
     Active Substance: AMLODIPINE BESYLATE
  13. VITAMIN D [Concomitant]
     Active Substance: CHOLECALCIFEROL
  14. BIO 25 PROBIOTIC ENZYMES [Concomitant]
  15. RYTMEX [Concomitant]
  16. VITAMIN C [Concomitant]
     Active Substance: ASCORBIC ACID
  17. CALCIUM [Concomitant]
     Active Substance: CALCIUM
  18. PROSTAGARD [Concomitant]

REACTIONS (5)
  - Fatigue [Unknown]
  - Hypercoagulation [Unknown]
  - Ventricular fibrillation [Unknown]
  - Gynaecomastia [Unknown]
  - Hypertension [Unknown]
